FAERS Safety Report 16370026 (Version 1)
Quarter: 2019Q2

REPORT INFORMATION
  Report Type: Spontaneous
  Country: NL (occurrence: NL)
  Receive Date: 20190530
  Receipt Date: 20190530
  Transmission Date: 20190711
  Serious: Yes (Other)
  Sender: FDA-Public Use
  Company Number: NL-ACCORD-130214

PATIENT
  Age: 32 Year
  Sex: Male
  Weight: 70 kg

DRUGS (4)
  1. VIT D [Concomitant]
     Active Substance: VITAMIN D NOS
     Dosage: 100 PIECES
  2. PARACETAMOL [Concomitant]
     Active Substance: ACETAMINOPHEN
     Dosage: 38 PIECES
  3. CLOZAPINE. [Suspect]
     Active Substance: CLOZAPINE
     Indication: PSYCHOTIC DISORDER
     Dosage: 58 PIECES (AUTOINTOXICATION) DAILY DOSE 1DD2
     Dates: start: 20190218, end: 20190218
  4. VALERIAAN [Concomitant]
     Active Substance: VALERIAN
     Dosage: 5-7 PIECES

REACTIONS (3)
  - Overdose [Unknown]
  - Insulin resistance [Recovered/Resolved]
  - Poisoning [Unknown]

NARRATIVE: CASE EVENT DATE: 20190218
